FAERS Safety Report 20657260 (Version 8)
Quarter: 2022Q2

REPORT INFORMATION
  Report Type: Other
  Country: GB (occurrence: GB)
  Receive Date: 20220331
  Receipt Date: 20220621
  Transmission Date: 20220720
  Serious: Yes (Hospitalization, Other)
  Sender: FDA-Public Use
  Company Number: GB-CELLTRION INC.-2020GB021079

PATIENT

DRUGS (77)
  1. TRASTUZUMAB [Suspect]
     Active Substance: TRASTUZUMAB
     Indication: Breast cancer metastatic
     Dosage: 651 MILLIGRAM, Q3WK (PHARMACEUTICAL DOSE FORM: 293)
     Route: 042
     Dates: start: 20171129, end: 20210903
  2. TRASTUZUMAB [Suspect]
     Active Substance: TRASTUZUMAB
     Indication: HER2 positive breast cancer
     Dosage: 651 MILLIGRAM, Q3WK (PHARMACEUTICAL DOSE FORM: 230)
     Route: 042
     Dates: start: 20171129, end: 20210903
  3. TRASTUZUMAB [Suspect]
     Active Substance: TRASTUZUMAB
     Dosage: 882 MILLIGRAM (PHARMACEUTICAL DOSE FORM: 293)
     Route: 042
     Dates: start: 20171108, end: 20171129
  4. TRASTUZUMAB [Suspect]
     Active Substance: TRASTUZUMAB
     Dosage: 8 MILLIGRAM, Q3WK (PHARMACEUTICAL DOSE FORM: 293)
     Route: 041
     Dates: start: 20171108
  5. TRASTUZUMAB [Suspect]
     Active Substance: TRASTUZUMAB
     Dosage: 600 MILLIGRAM, Q3WK (PHARMACEUTICAL DOSE FORM: 293)
     Route: 058
     Dates: start: 20211015
  6. TRASTUZUMAB [Suspect]
     Active Substance: TRASTUZUMAB
     Dosage: 651 MILLIGRAM, Q3WK (PHARMACEUTICAL DOSE FORM: 293) (CUMULATIVE DOSE TO FIRST REACTION: 10447.0 MG)
     Route: 042
     Dates: start: 20171129, end: 20210903
  7. TRASTUZUMAB [Suspect]
     Active Substance: TRASTUZUMAB
     Dosage: 600 MILLIGRAM, Q3WK (PHARMACEUTICAL DOSE FORM: 293)
     Route: 058
     Dates: start: 20211015
  8. TRASTUZUMAB [Suspect]
     Active Substance: TRASTUZUMAB
     Dosage: 8 MG, Q3W, INFUSION, SOLUTION (CUMULATIVE DOSE: 124.556 MG; DOSE FORM: 293)
     Route: 042
     Dates: start: 20171108
  9. TRASTUZUMAB [Suspect]
     Active Substance: TRASTUZUMAB
     Indication: Breast cancer metastatic
     Dosage: 8 MILLIGRAM, Q3WK (CUMULATIVE DOSE: 124.55556 MG; DOSE FORM: 293)
     Route: 042
     Dates: start: 20171108
  10. PERTUZUMAB [Suspect]
     Active Substance: PERTUZUMAB
     Indication: Breast cancer metastatic
     Dosage: 840 MILLIGRAM, Q3WK
     Route: 042
     Dates: start: 20181120
  11. PERTUZUMAB [Suspect]
     Active Substance: PERTUZUMAB
     Indication: HER2 positive breast cancer
     Dosage: 420 MILLIGRAM, QWK
     Route: 042
     Dates: start: 20171129, end: 20210924
  12. PERTUZUMAB [Suspect]
     Active Substance: PERTUZUMAB
     Dosage: 600 MILLIGRAM, Q3WK
     Route: 058
     Dates: start: 20211015
  13. PERTUZUMAB [Suspect]
     Active Substance: PERTUZUMAB
     Dosage: 840 MILLIGRAM, Q3WK
     Route: 042
     Dates: start: 20171108, end: 20171129
  14. PERTUZUMAB [Suspect]
     Active Substance: PERTUZUMAB
     Dosage: 420 MILLIGRAM, 1/WEEK (PHARMACEUTICAL FORM: 230)
     Route: 042
     Dates: start: 20171129, end: 20210924
  15. PERTUZUMAB [Suspect]
     Active Substance: PERTUZUMAB
     Dosage: 420 MILLIGRAM,1/WEEK (PHARMACEUTICAL FORM: 230)
     Route: 042
     Dates: start: 20171129, end: 20210924
  16. PERTUZUMAB [Suspect]
     Active Substance: PERTUZUMAB
     Dosage: 420 MILLIGRAM, 1/WEEK (PHARMACEUTICAL FORM: 230)
     Route: 042
     Dates: start: 20171129, end: 20210924
  17. PERTUZUMAB [Suspect]
     Active Substance: PERTUZUMAB
     Dosage: 420 MILLIGRAM, 1/WEEK (PHARMACEUTICAL FORM: 230)
     Route: 042
     Dates: start: 20171129, end: 20210924
  18. PERTUZUMAB [Suspect]
     Active Substance: PERTUZUMAB
     Dosage: 840 MILLIGRAM, 3/WEEK
     Route: 042
     Dates: start: 20171108, end: 20171129
  19. PERTUZUMAB [Suspect]
     Active Substance: PERTUZUMAB
     Dosage: 840 MILLIGRAM, 3/WEEK
     Route: 042
     Dates: start: 20171108, end: 20171129
  20. PERTUZUMAB [Suspect]
     Active Substance: PERTUZUMAB
     Dosage: 840 MILLIGRAM, 3/WEEK
     Route: 042
     Dates: start: 20171108, end: 20171129
  21. PERTUZUMAB [Suspect]
     Active Substance: PERTUZUMAB
     Dosage: 600 MILLIGRAM, 3/WEEK
     Route: 058
     Dates: start: 20211015
  22. PERTUZUMAB [Suspect]
     Active Substance: PERTUZUMAB
     Dosage: 600 MILLIGRAM, 3/WEEK
     Route: 058
     Dates: start: 20211015
  23. PERTUZUMAB [Suspect]
     Active Substance: PERTUZUMAB
     Dosage: 600 MILLIGRAM, 3/WEEK
     Route: 058
     Dates: start: 20211015
  24. PERTUZUMAB [Suspect]
     Active Substance: PERTUZUMAB
     Dosage: 840 MILLIGRAM, 3/WEEK (PHARMACEUTICAL DOSAGE FORM: 230)
     Route: 042
     Dates: start: 20181120
  25. PERTUZUMAB [Suspect]
     Active Substance: PERTUZUMAB
     Dosage: 840 MILLIGRAM, 3/WEEK (PHARMACEUTICAL DOSAGE FORM: 230)
     Route: 042
     Dates: start: 20181120
  26. PERTUZUMAB [Suspect]
     Active Substance: PERTUZUMAB
     Dosage: 840 MILLIGRAM, 3/WEEK (PHARMACEUTICAL DOSAGE FORM: 230)
     Route: 042
     Dates: start: 20181120
  27. PERTUZUMAB [Suspect]
     Active Substance: PERTUZUMAB
     Dosage: 840 MILLIGRAM, 3/WEEK (PHARMACEUTICAL DOSAGE FORM: 230)
     Route: 042
     Dates: start: 20181120
  28. PERTUZUMAB [Suspect]
     Active Substance: PERTUZUMAB
     Dosage: 840 MILLIGRAM, Q3WK (CUMULATIVE DOSE: 2001.6666 MG)
     Route: 042
     Dates: start: 20181120
  29. PERTUZUMAB [Suspect]
     Active Substance: PERTUZUMAB
     Dosage: 840 MG, Q3W (CUMULATIVE DOSE: 2001.667 MG; DOSE FORM: 230)
     Route: 042
     Dates: start: 20181120
  30. HYALURONIDASE (HUMAN RECOMBINANT) [Suspect]
     Active Substance: HYALURONIDASE (HUMAN RECOMBINANT)
     Indication: Breast cancer metastatic
     Dosage: 600 MILLIGRAM, Q3WK
     Route: 058
     Dates: start: 20211015
  31. DOCETAXEL [Suspect]
     Active Substance: DOCETAXEL
     Indication: Breast cancer metastatic
     Dosage: 148 MILLIGRAM, 3/WEEK (CUMULATIVE DOSE TO FIRST REACTION: 2523.0476 MG)
     Route: 042
     Dates: start: 20171108, end: 20180131
  32. DOCETAXEL [Suspect]
     Active Substance: DOCETAXEL
     Indication: HER2 positive breast cancer
     Dosage: 148 MILLIGRAM, 3/WEEK (CUMULATIVE DOSE TO FIRST REACTION: 2304.278 MG)
     Route: 042
     Dates: start: 20171108, end: 20180131
  33. DOCETAXEL [Suspect]
     Active Substance: DOCETAXEL
     Dosage: 592 MILLIGRAM (CUMULATIVE DOSE TO FIRST REACTION: 592 MG)
     Route: 065
     Dates: start: 20171108, end: 20180131
  34. CLENIL [BECLOMETASONE DIPROPIONATE] [Concomitant]
     Dosage: 2 PUFF
  35. CLENIL [BECLOMETASONE DIPROPIONATE] [Concomitant]
     Dosage: 0.5 PUFF
     Route: 065
  36. CLENIL [BECLOMETASONE DIPROPIONATE] [Concomitant]
     Dosage: 0.5 DAY 2 PUFF
  37. CLONAZEPAM [Concomitant]
     Active Substance: CLONAZEPAM
     Indication: Muscle spasms
     Dosage: 250 MILLIGRAM, QD (PHARMACEUTICAL DOSE FORM: 245)
     Route: 048
  38. CLONAZEPAM [Concomitant]
     Active Substance: CLONAZEPAM
     Dosage: 250 MILLIGRAM, QD
     Route: 048
     Dates: start: 2020
  39. ERYTHROMYCIN [Concomitant]
     Active Substance: ERYTHROMYCIN
     Dosage: 500 MILLIGRAM 0.25 DAY
     Route: 048
     Dates: start: 2020, end: 202007
  40. ERYTHROMYCIN [Concomitant]
     Active Substance: ERYTHROMYCIN
     Dosage: 2000 MG, QD (PHARMACEUTICAL DOSE FORM: 245)
     Route: 048
     Dates: start: 2020, end: 202007
  41. LACTULOSE [Concomitant]
     Active Substance: LACTULOSE
     Indication: Prophylaxis
     Dosage: 10 MILLILITER 0.5 DAY
     Route: 048
  42. LACTULOSE [Concomitant]
     Active Substance: LACTULOSE
     Dosage: 20 ML, QD (PHARMACEUTICAL DOSE FORM: 169)
     Route: 048
  43. LACTULOSE [Concomitant]
     Active Substance: LACTULOSE
     Dosage: 10 ML, BID (0.5 DAY)
     Route: 048
  44. OMEPRAZOLE [Concomitant]
     Active Substance: OMEPRAZOLE
     Indication: Product used for unknown indication
     Dosage: 40 MILLIGRAM, QD (PHARMACEUTICAL DOSE FORM: 5)
     Route: 048
     Dates: start: 201710
  45. ONDANSETRON [Concomitant]
     Active Substance: ONDANSETRON
     Indication: Diarrhoea
     Dosage: 4 MILLIGRAM
     Route: 042
     Dates: start: 20181001, end: 20181002
  46. ONDANSETRON [Concomitant]
     Active Substance: ONDANSETRON
     Dosage: 4 MILLIGRAM
     Dates: start: 20181002, end: 20181002
  47. OXYCODONE [Concomitant]
     Active Substance: OXYCODONE
     Indication: Cancer pain
     Dosage: 110 MILLIGRAM, QD
     Route: 048
  48. OXYCODONE [Concomitant]
     Active Substance: OXYCODONE
     Dosage: 220 MILLIGRAM, QD (PHARMACEUTICAL DOSE FORM: 245)
     Route: 048
  49. OXYCODONE [Concomitant]
     Active Substance: OXYCODONE
     Dosage: 110 MG, BID (0.5 DAY)
     Route: 048
  50. QUETIAPINE [Concomitant]
     Active Substance: QUETIAPINE
     Indication: Depressed mood
     Dosage: 150 MILLIGRAM, QD (PHARMACEUTICAL DOSE FORM: 245)
     Route: 048
     Dates: start: 2020
  51. QUETIAPINE [Concomitant]
     Active Substance: QUETIAPINE
     Dosage: 100 MILLIGRAM, QD (PHARMACEUTICAL DOSE FORM: 245)
     Route: 048
     Dates: start: 2020
  52. RAMIPRIL [Concomitant]
     Active Substance: RAMIPRIL
     Indication: Product used for unknown indication
     Dosage: 1.25 MILLIGRAM, QD (PHARMACEUTICAL DOSE FORM: 245)
     Route: 048
  53. ALBUTEROL [Concomitant]
     Active Substance: ALBUTEROL
     Indication: Product used for unknown indication
     Dosage: 2 PUFF, AS NECESSARY
  54. ALBUTEROL [Concomitant]
     Active Substance: ALBUTEROL
     Dosage: 2 PUFF
  55. ALBUTEROL [Concomitant]
     Active Substance: ALBUTEROL
     Dosage: PRN (DOSE 2 PUFF)
     Route: 055
  56. SIMVASTATIN [Concomitant]
     Active Substance: SIMVASTATIN
     Indication: Product used for unknown indication
     Dosage: 40 MILLIGRAM, QD (PHARMACEUTICAL DOSE FORM: 245)
     Route: 048
  57. SODIUM PICOSULFATE [Concomitant]
     Active Substance: SODIUM PICOSULFATE
     Indication: Constipation
     Dosage: UNK UNK, QD
     Route: 048
  58. SODIUM PICOSULFATE [Concomitant]
     Active Substance: SODIUM PICOSULFATE
     Dosage: DOSE 10 OTHER (10 MG IN 10 ML)
     Route: 048
  59. SODIUM PICOSULFATE [Concomitant]
     Active Substance: SODIUM PICOSULFATE
     Dosage: 10 MILLIGRAM PER 10 MILLILITRE, QD
     Route: 048
  60. VANCOMYCIN [Concomitant]
     Active Substance: VANCOMYCIN
     Dosage: 1750 MILLIGRAM 0.5 DAY
     Route: 042
     Dates: start: 20200612, end: 202006
  61. VANCOMYCIN [Concomitant]
     Active Substance: VANCOMYCIN
     Dosage: 3500 MILLIGRAM, QD
     Route: 042
     Dates: start: 20200612, end: 202006
  62. BECLOMETHASONE DIPROPIONATE [Concomitant]
     Active Substance: BECLOMETHASONE DIPROPIONATE
     Indication: Cancer pain
     Dosage: 0.5 DAY PUFF
  63. BECLOMETHASONE DIPROPIONATE [Concomitant]
     Active Substance: BECLOMETHASONE DIPROPIONATE
     Dosage: 2 PUFF, BID
     Route: 055
  64. BECLOMETHASONE DIPROPIONATE [Concomitant]
     Active Substance: BECLOMETHASONE DIPROPIONATE
     Dosage: 2 OT, QD (DOSE 2 PUFF)
     Route: 055
  65. CALCIUM CARBONATE [Concomitant]
     Active Substance: CALCIUM CARBONATE
     Indication: Product used for unknown indication
     Dosage: 1 DOSAGE FORM, BID
     Route: 048
  66. CALCIUM CARBONATE [Concomitant]
     Active Substance: CALCIUM CARBONATE
     Dosage: 1 DOSAGE FORM, QD
     Route: 048
  67. CHOLECALCIFEROL [Concomitant]
     Active Substance: CHOLECALCIFEROL
     Indication: Product used for unknown indication
     Dosage: 1 DF,0.5
     Route: 048
  68. LINEZOLID [Concomitant]
     Active Substance: LINEZOLID
     Indication: Device related infection
     Dosage: UNK
  69. LINEZOLID [Concomitant]
     Active Substance: LINEZOLID
     Dosage: 600 MILLIGRAM
     Route: 048
     Dates: start: 20191125, end: 20191130
  70. METFORMIN [Concomitant]
     Active Substance: METFORMIN HYDROCHLORIDE
     Indication: Product used for unknown indication
     Dosage: 500 MILLIGRAM, QD
     Route: 048
  71. METFORMIN [Concomitant]
     Active Substance: METFORMIN HYDROCHLORIDE
     Dosage: 500 MG, QD
     Route: 048
  72. MIRTAZAPINE [Concomitant]
     Active Substance: MIRTAZAPINE
     Indication: Product used for unknown indication
     Dosage: 45 MG,QD
     Route: 048
  73. MORPHINE [Concomitant]
     Active Substance: MORPHINE
     Indication: Cancer pain
     Dosage: 5 MILLIGRAM
     Dates: start: 20181002, end: 20181002
  74. NITROFURANTOIN [Concomitant]
     Active Substance: NITROFURANTOIN
     Indication: Urinary tract infection
     Dosage: 200 MILLIGRAM, QD (CUMULATIVE DOSE: 1400 MG)
     Route: 048
     Dates: start: 20181103, end: 20181109
  75. NITROFURANTOIN [Concomitant]
     Active Substance: NITROFURANTOIN
     Dosage: 50 MG (CUMULATIVE DOSE: 6608.333 MG)
     Route: 048
     Dates: start: 20181103, end: 20181109
  76. BECLOMETHASONE DIPROPIONATE [Concomitant]
     Active Substance: BECLOMETHASONE DIPROPIONATE
     Dosage: 2 OT, QD
  77. BECLOMETHASONE DIPROPIONATE [Concomitant]
     Active Substance: BECLOMETHASONE DIPROPIONATE
     Dosage: PUFF, BID

REACTIONS (14)
  - Urinary tract infection [Recovered/Resolved]
  - Dizziness [Recovered/Resolved]
  - Headache [Recovered/Resolved]
  - Back pain [Recovered/Resolved with Sequelae]
  - Muscle spasms [Recovered/Resolved with Sequelae]
  - Device related infection [Recovered/Resolved]
  - Muscle spasms [Recovered/Resolved]
  - Abdominal rigidity [Recovered/Resolved]
  - Vomiting [Recovered/Resolved]
  - Diarrhoea [Recovered/Resolved]
  - Abdominal pain [Recovered/Resolved]
  - Nausea [Recovered/Resolved]
  - Off label use [Unknown]
  - Off label use [Unknown]

NARRATIVE: CASE EVENT DATE: 20180904
